FAERS Safety Report 20812562 (Version 3)
Quarter: 2022Q3

REPORT INFORMATION
  Report Type: Report from Study
  Country: PT (occurrence: PT)
  Receive Date: 20220511
  Receipt Date: 20220720
  Transmission Date: 20221026
  Serious: Yes (Hospitalization)
  Sender: FDA-Public Use
  Company Number: PT-ABBVIE-22K-130-4380778-00

PATIENT
  Age: 77 Year
  Sex: Male

DRUGS (9)
  1. CARBIDOPA\LEVODOPA [Suspect]
     Active Substance: CARBIDOPA\LEVODOPA
     Indication: Parkinson^s disease
     Dosage: 20 MG PLUS 5 MG MORNING:12CC; MAINT:3,5CC/H; EXTRA:1CC
     Route: 050
     Dates: start: 20210921, end: 2022
  2. CARBIDOPA\LEVODOPA [Suspect]
     Active Substance: CARBIDOPA\LEVODOPA
     Dosage: 20 MG PLUS 5 MG MORNING:12,5CC; MAINT:4,8CC/H; EXTRA:2CC
     Route: 050
     Dates: start: 2022, end: 20220503
  3. CARBIDOPA\LEVODOPA [Suspect]
     Active Substance: CARBIDOPA\LEVODOPA
     Dosage: 20 MG PLUS 5 MG MORNIN:12CC;MAINT:4.5CC/H; EXTRA:1CC
     Route: 050
     Dates: start: 20220503, end: 20220509
  4. CARBIDOPA\LEVODOPA [Suspect]
     Active Substance: CARBIDOPA\LEVODOPA
     Dosage: MORNIN:13CC;MAINT:5CC/H; EXTRA:3CC 20 MG + 5 MG
     Route: 050
     Dates: start: 20220512, end: 202205
  5. CARBIDOPA\LEVODOPA [Suspect]
     Active Substance: CARBIDOPA\LEVODOPA
     Dosage: MORN:13CC;MAINT:7.5CC/H; EXTRA:3CC 20 MG + 5 MG
     Route: 050
     Dates: start: 202205, end: 202206
  6. CARBIDOPA\LEVODOPA [Suspect]
     Active Substance: CARBIDOPA\LEVODOPA
     Dosage: MORN:12.5CC;MAINT:6.3CC/H; EXTRA:3CC
     Route: 050
     Dates: start: 202206
  7. OPICAPONE [Concomitant]
     Active Substance: OPICAPONE
     Indication: Product used for unknown indication
     Dosage: 1 TABLET AT NIGHT?STARTED BEFORE DUODOPA
  8. RIVOTRIL [Concomitant]
     Active Substance: CLONAZEPAM
     Indication: Product used for unknown indication
     Dosage: AT NIGHT?STARTED BEFORE DUODOPA
  9. LOSARTAN [Concomitant]
     Active Substance: LOSARTAN
     Indication: Blood pressure measurement
     Dosage: 1 HOUR BEFORE BEDTIME
     Route: 048
     Dates: start: 202112

REACTIONS (9)
  - Dyskinesia [Recovered/Resolved]
  - Haematoma [Not Recovered/Not Resolved]
  - Hallucination [Recovered/Resolved]
  - Bradykinesia [Not Recovered/Not Resolved]
  - Freezing phenomenon [Not Recovered/Not Resolved]
  - Gait disturbance [Unknown]
  - Behaviour disorder [Recovered/Resolved]
  - Fall [Recovered/Resolved]
  - Pain [Not Recovered/Not Resolved]

NARRATIVE: CASE EVENT DATE: 20220101
